FAERS Safety Report 24307827 (Version 1)
Quarter: 2024Q3

REPORT INFORMATION
  Report Type: Spontaneous
  Country: US (occurrence: None)
  Receive Date: 20240911
  Receipt Date: 20240911
  Transmission Date: 20241017
  Serious: Yes (Other)
  Sender: Public
  Company Number: None

PATIENT
  Age: 68 Year
  Sex: Male
  Weight: 93.8 kg

DRUGS (11)
  1. INGREZZA [Suspect]
     Active Substance: VALBENAZINE
     Indication: Dyskinesia
     Dates: start: 20240626
  2. ELIQUIS [Concomitant]
     Active Substance: APIXABAN
  3. ZYRTEC [Concomitant]
     Active Substance: CETIRIZINE HYDROCHLORIDE
  4. COREG [Concomitant]
     Active Substance: CARVEDILOL
  5. GABAPENTIN [Concomitant]
     Active Substance: GABAPENTIN
  6. FINASTERIDE [Concomitant]
     Active Substance: FINASTERIDE
  7. LURASIDONE [Concomitant]
     Active Substance: LURASIDONE
  8. MIRTAZAPINE [Concomitant]
     Active Substance: MIRTAZAPINE
  9. VILAZODONE [Concomitant]
     Active Substance: VILAZODONE
  10. ROSUVASTATIN [Concomitant]
     Active Substance: ROSUVASTATIN\ROSUVASTATIN CALCIUM
  11. HYDROCHLOROTHIAZIDE [Concomitant]
     Active Substance: HYDROCHLOROTHIAZIDE

REACTIONS (3)
  - Insomnia [None]
  - Obstructive sleep apnoea syndrome [None]
  - Apnoea test abnormal [None]

NARRATIVE: CASE EVENT DATE: 20240719
